FAERS Safety Report 7219525-9 (Version None)
Quarter: 2011Q1

REPORT INFORMATION
  Report Type: 
  Country: None (occurrence: None)
  Receive Date: 20110111
  Receipt Date: 20110104
  Transmission Date: 20110831
  Serious: Yes (Hospitalization, Other)
  Sender: FDA-Public Use
  Company Number: JP-JNJFOC-20101207631

PATIENT
  Age: 35 Year
  Sex: Male

DRUGS (4)
  1. TEGRETOL [Suspect]
     Indication: ILL-DEFINED DISORDER
     Route: 048
  2. TASMOLIN [Suspect]
     Indication: ILL-DEFINED DISORDER
     Route: 048
  3. ARTANE [Suspect]
     Indication: PRODUCT USED FOR UNKNOWN INDICATION
     Route: 048
  4. RISPERDAL [Suspect]
     Indication: SCHIZOPHRENIA
     Route: 048

REACTIONS (3)
  - MULTIPLE DRUG OVERDOSE [None]
  - FEELING COLD [None]
  - TREATMENT NONCOMPLIANCE [None]
